FAERS Safety Report 8487045-X (Version None)
Quarter: 2012Q3

REPORT INFORMATION
  Report Type: 
  Country: None (occurrence: None)
  Receive Date: 20120704
  Receipt Date: 20120626
  Transmission Date: 20120928
  Serious: Yes (Other)
  Sender: FDA-Public Use
  Company Number: PHHY2012FR047363

PATIENT
  Sex: Male
  Weight: 100 kg

DRUGS (23)
  1. ATARAX [Concomitant]
  2. NOROXIN [Concomitant]
  3. AMITRIPTYLINE HCL [Concomitant]
     Indication: DEPRESSION
     Dosage: 50 MG, QD
     Dates: start: 20100101
  4. IGNATIA [Concomitant]
  5. CLOZAPINE [Suspect]
     Indication: SCHIZOPHRENIA
     Dosage: 250 MG, DAILY
     Dates: start: 20080101, end: 20120313
  6. CLOZAPINE [Suspect]
     Dosage: 200 MG, QD
     Dates: start: 20120423
  7. BOIRON [Concomitant]
  8. DEPAKOTE [Suspect]
     Indication: THYMUS DISORDER
     Dosage: 1500 MG, QD
     Dates: start: 20080101
  9. METFORMIN HYDROCHLORIDE [Concomitant]
     Dosage: 50 MG, QD
     Dates: start: 20110101
  10. METFORMIN HCL [Concomitant]
     Indication: DIABETES MELLITUS
     Dosage: 1000 MG, QD
  11. LANSOPRAZOLE [Concomitant]
     Indication: DYSLIPIDAEMIA
     Dosage: 20 MG, QD
     Route: 048
     Dates: start: 20080101
  12. NORFLOXACIN [Concomitant]
  13. THERALENE [Concomitant]
  14. GELSEMIUM [Concomitant]
  15. GEMSENIUM [Concomitant]
  16. BISOPROLOL FUMARATE [Concomitant]
  17. ARNICA [Concomitant]
  18. AMARA [Concomitant]
  19. CLOZAPINE [Suspect]
     Dosage: 250 MG, UNK
     Dates: start: 20120515
  20. NOZINAN [Suspect]
     Dosage: 250 MG, QD
     Dates: start: 20120410, end: 20120507
  21. RAMIPRIL [Suspect]
     Indication: HYPERTENSION
     Dosage: 2.5 MG, QD
     Dates: start: 20080101
  22. OXAZEPAM [Concomitant]
  23. LEPTICUR [Concomitant]
     Indication: PARKINSONISM
     Dosage: 10 MG, QD
     Route: 048
     Dates: start: 20080101

REACTIONS (10)
  - PETIT MAL EPILEPSY [None]
  - SINUS TACHYCARDIA [None]
  - DEPRESSED LEVEL OF CONSCIOUSNESS [None]
  - HYPOTONIA [None]
  - AFFECTIVE DISORDER [None]
  - BALANCE DISORDER [None]
  - CONFUSIONAL STATE [None]
  - CEREBRAL ATROPHY [None]
  - NERVOUS SYSTEM DISORDER [None]
  - ABNORMAL BEHAVIOUR [None]
